FAERS Safety Report 11206409 (Version 2)
Quarter: 2015Q2

REPORT INFORMATION
  Report Type: Report from Study
  Country: AU (occurrence: AU)
  Receive Date: 20150622
  Receipt Date: 20150629
  Transmission Date: 20150821
  Serious: Yes (Hospitalization)
  Sender: FDA-Public Use
  Company Number: AU-GLAXOSMITHKLINE-AU2015GSK048785

PATIENT
  Age: 73 Year
  Sex: Male
  Weight: 87.4 kg

DRUGS (5)
  1. PREDNISOLONE. [Concomitant]
     Active Substance: PREDNISOLONE
     Dosage: 50 MG, UNK
     Route: 048
     Dates: start: 20150316, end: 20150410
  2. ELTROMBOPAG [Suspect]
     Active Substance: ELTROMBOPAG
     Dosage: 150 MG, QD
     Dates: start: 20150414
  3. ELTROMBOPAG [Suspect]
     Active Substance: ELTROMBOPAG
     Indication: THROMBOCYTOPENIA
     Dosage: 75 MG, QD
     Dates: start: 20150316
  4. ELTROMBOPAG [Suspect]
     Active Substance: ELTROMBOPAG
     Dosage: 100 MG, QD
     Dates: start: 20150407
  5. PREDNISOLONE. [Concomitant]
     Active Substance: PREDNISOLONE
     Dosage: 25 MG, UNK
     Route: 048
     Dates: start: 20150410

REACTIONS (1)
  - Platelet count decreased [Not Recovered/Not Resolved]

NARRATIVE: CASE EVENT DATE: 20150410
